FAERS Safety Report 6045802-3 (Version None)
Quarter: 2009Q1

REPORT INFORMATION
  Report Type: 
  Country: None (occurrence: None)
  Receive Date: 20090121
  Receipt Date: 20090112
  Transmission Date: 20090719
  Serious: Yes (Other)
  Sender: FDA-Public Use
  Company Number: US-ABBOTT-09P-163-0498273-00

PATIENT
  Age: 64 Year
  Sex: Female

DRUGS (6)
  1. WARFARIN SODIUM [Suspect]
     Indication: ANTICOAGULANT THERAPY
     Dosage: FIRST 2 NIGHTS
  2. WARFARIN SODIUM [Suspect]
     Dosage: {10 MG
  3. HEPARIN [Suspect]
     Indication: THROMBOSIS PROPHYLAXIS
     Route: 058
  4. HEPARIN [Suspect]
     Indication: OXYGEN SATURATION DECREASED
     Route: 042
  5. HEPARIN [Suspect]
     Indication: PULMONARY EMBOLISM
  6. ENOXAPARIN SODIUM [Suspect]
     Indication: ANTICOAGULANT THERAPY
     Route: 058

REACTIONS (2)
  - HEPARIN-INDUCED THROMBOCYTOPENIA [None]
  - SKIN NECROSIS [None]
